FAERS Safety Report 21491554 (Version 1)
Quarter: 2022Q4

REPORT INFORMATION
  Report Type: Report from Study
  Country: US (occurrence: US)
  Receive Date: 20221021
  Receipt Date: 20221021
  Transmission Date: 20230112
  Serious: Yes (Hospitalization)
  Sender: FDA-Public Use
  Company Number: US-BoehringerIngelheim-2022-BI-198579

PATIENT
  Sex: Male
  Weight: 51.70 kg

DRUGS (1)
  1. OFEV [Suspect]
     Active Substance: NINTEDANIB
     Indication: Idiopathic pulmonary fibrosis
     Route: 048
     Dates: start: 20200601

REACTIONS (4)
  - Stent placement [Unknown]
  - Dyspnoea [Unknown]
  - Diarrhoea [Unknown]
  - Weight decreased [Unknown]
